FAERS Safety Report 4883545-X (Version None)
Quarter: 2006Q1

REPORT INFORMATION
  Report Type: 
  Country: None (occurrence: None)
  Receive Date: 20060118
  Receipt Date: 20051220
  Transmission Date: 20060701
  Serious: Yes (Hospitalization, Disabling)
  Sender: FDA-Public Use
  Company Number: US-MERCK-0512USA03309

PATIENT
  Age: 64 Year
  Sex: Female
  Weight: 59 kg

DRUGS (1)
  1. VIOXX [Suspect]
     Indication: PAIN
     Route: 048
     Dates: start: 20040816, end: 20040801

REACTIONS (20)
  - ACUTE RESPIRATORY FAILURE [None]
  - ANXIETY DISORDER [None]
  - ASTHENIA [None]
  - ASTHMA [None]
  - ATELECTASIS [None]
  - CATHETER SEPSIS [None]
  - CEREBROVASCULAR ACCIDENT [None]
  - CHOLELITHIASIS [None]
  - ENTEROCOCCAL INFECTION [None]
  - HEPATIC LESION [None]
  - HYPOTENSION [None]
  - MENINGITIS [None]
  - PANIC DISORDER [None]
  - PNEUMONITIS [None]
  - RENAL ATROPHY [None]
  - SEPTIC EMBOLUS [None]
  - SHOCK [None]
  - SPLENIC ABSCESS [None]
  - STAPHYLOCOCCAL SEPSIS [None]
  - UROSEPSIS [None]
